FAERS Safety Report 5054297-8 (Version None)
Quarter: 2006Q3

REPORT INFORMATION
  Report Type: 
  Country: None (occurrence: None)
  Receive Date: 20060713
  Receipt Date: 20060703
  Transmission Date: 20061208
  Serious: Yes (Hospitalization)
  Sender: FDA-Public Use
  Company Number: 2006RL000185

PATIENT
  Age: 39 Year
  Sex: Male

DRUGS (8)
  1. OMACOR [Suspect]
     Dosage: PO
     Route: 048
     Dates: start: 20040701, end: 20050901
  2. ASPIRIN [Suspect]
     Indication: ARTERIAL DISORDER
     Dosage: PO
     Route: 048
     Dates: start: 20030707, end: 20050901
  3. INEGY 10/40 (EZETIMIB/SIMVASTATIN) [Concomitant]
  4. SIMVASTATIN [Concomitant]
  5. EZETROL [Concomitant]
  6. METOPROLOL TARTRATE [Concomitant]
  7. DELIX [Concomitant]
  8. LEVOTHYROXINE SODIUM [Concomitant]

REACTIONS (2)
  - PHARYNGEAL HAEMORRHAGE [None]
  - POST PROCEDURAL COMPLICATION [None]
